FAERS Safety Report 7429539-1 (Version None)
Quarter: 2011Q2

REPORT INFORMATION
  Report Type: 
  Country: None (occurrence: None)
  Receive Date: 20110421
  Receipt Date: 20110419
  Transmission Date: 20111010
  Serious: Yes (Death, Hospitalization)
  Sender: FDA-Public Use
  Company Number: A0898660A

PATIENT
  Age: 62 Year
  Sex: Female

DRUGS (1)
  1. AVANDIA [Suspect]
     Dosage: 4MG TWICE PER DAY
     Route: 048
     Dates: start: 20000415, end: 20020905

REACTIONS (4)
  - CONVULSION [None]
  - CARDIAC FAILURE CONGESTIVE [None]
  - CARDIAC ARREST [None]
  - ARRHYTHMIA [None]
